FAERS Safety Report 16882371 (Version 1)
Quarter: 2019Q4

REPORT INFORMATION
  Report Type: Spontaneous
  Country: US (occurrence: US)
  Receive Date: 20191003
  Receipt Date: 20191003
  Transmission Date: 20200122
  Serious: Yes (Death)
  Sender: FDA-Public Use
  Company Number: US-ALLERGAN-1936105US

PATIENT
  Sex: Female
  Weight: 27.66 kg

DRUGS (1)
  1. BOTOX [Suspect]
     Active Substance: ONABOTULINUMTOXINA
     Indication: DROOLING
     Dosage: UNK UNK, SINGLE
     Dates: start: 20190811, end: 20190811

REACTIONS (7)
  - Death [Fatal]
  - Dysphagia [Not Recovered/Not Resolved]
  - Off label use [Unknown]
  - Weight decreased [Unknown]
  - Incorrect route of product administration [Unknown]
  - Drug ineffective for unapproved indication [Unknown]
  - Speech disorder [Unknown]

NARRATIVE: CASE EVENT DATE: 201908
